FAERS Safety Report 13100633 (Version 1)
Quarter: 2017Q1

REPORT INFORMATION
  Report Type: Spontaneous
  Country: US (occurrence: US)
  Receive Date: 20170109
  Receipt Date: 20170109
  Transmission Date: 20170428
  Serious: Yes (Hospitalization)
  Sender: FDA-Public Use
  Company Number: None

PATIENT
  Age: 23 Year
  Sex: Male

DRUGS (1)
  1. EPCLUSA [Suspect]
     Active Substance: SOFOSBUVIR\VELPATASVIR
     Indication: HEPATITIS C
     Dosage: EPCLUSA 400-100 QD ORAL
     Route: 048
     Dates: start: 20161231, end: 20170102

REACTIONS (3)
  - Drug dose omission [None]
  - Bronchitis [None]
  - Chest pain [None]

NARRATIVE: CASE EVENT DATE: 20161231
